FAERS Safety Report 5725243-6 (Version None)
Quarter: 2008Q2

REPORT INFORMATION
  Report Type: 
  Country: None (occurrence: None)
  Receive Date: 20080501
  Receipt Date: 20080422
  Transmission Date: 20081010
  Serious: Yes (Hospitalization, Other)
  Sender: FDA-Public Use
  Company Number: US-MERCK-0607USA03256

PATIENT
  Age: 76 Year
  Sex: Female
  Weight: 68 kg

DRUGS (5)
  1. FOSAMAX [Suspect]
     Indication: OSTEOPOROSIS
     Route: 048
     Dates: start: 20050401, end: 20060201
  2. FOSAMAX [Suspect]
     Route: 048
     Dates: start: 20010101
  3. METOPROLOL [Concomitant]
     Indication: BLOOD PRESSURE
     Route: 065
     Dates: start: 19960101
  4. [THERAPY UNSPECIFIED] [Concomitant]
     Indication: ANXIETY
     Route: 065
     Dates: start: 20060201, end: 20070601
  5. BUSPIRONE HYDROCHLORIDE [Concomitant]
     Indication: NERVOUSNESS
     Route: 065
     Dates: start: 20060201, end: 20070101

REACTIONS (47)
  - AGEUSIA [None]
  - ANAEMIA [None]
  - ANXIETY [None]
  - ARRHYTHMIA SUPRAVENTRICULAR [None]
  - ASTHENIA [None]
  - ATRIAL TACHYCARDIA [None]
  - BENIGN NEOPLASM OF SKIN [None]
  - BONE PAIN [None]
  - BURSITIS [None]
  - CAROTID ARTERY STENOSIS [None]
  - CEREBROVASCULAR ACCIDENT [None]
  - CEREBROVASCULAR DISORDER [None]
  - CHEST DISCOMFORT [None]
  - CHRONIC OBSTRUCTIVE PULMONARY DISEASE [None]
  - CORONARY ARTERY STENOSIS [None]
  - CYANOSIS [None]
  - DEPRESSION [None]
  - DYSPHASIA [None]
  - DYSPNOEA [None]
  - EAR DISORDER [None]
  - EAR PAIN [None]
  - FALL [None]
  - FATIGUE [None]
  - HEADACHE [None]
  - HERPES ZOSTER [None]
  - HYPOXIA [None]
  - INJURY [None]
  - KYPHOSIS [None]
  - LOBAR PNEUMONIA [None]
  - LUNG DISORDER [None]
  - MEMORY IMPAIRMENT [None]
  - NASOPHARYNGITIS [None]
  - NECK PAIN [None]
  - NERVOUSNESS [None]
  - OBSTRUCTIVE AIRWAYS DISORDER [None]
  - OEDEMA PERIPHERAL [None]
  - OSTEOARTHRITIS [None]
  - OSTEOMYELITIS [None]
  - OSTEONECROSIS [None]
  - PNEUMONIA [None]
  - PNEUMONIA STREPTOCOCCAL [None]
  - SLEEP APNOEA SYNDROME [None]
  - SPINAL FRACTURE [None]
  - THROMBOPHLEBITIS SUPERFICIAL [None]
  - URINARY TRACT INFECTION [None]
  - VARICOSE VEIN [None]
  - VENOUS STASIS [None]
